FAERS Safety Report 13466849 (Version 1)
Quarter: 2017Q2

REPORT INFORMATION
  Report Type: Spontaneous
  Country: US (occurrence: US)
  Receive Date: 20170420
  Receipt Date: 20170420
  Transmission Date: 20170830
  Serious: No
  Sender: FDA-Public Use
  Company Number: None

PATIENT
  Sex: Female

DRUGS (2)
  1. CAPECITABINE 500MG ACCORD [Suspect]
     Active Substance: CAPECITABINE
     Indication: BREAST CANCER FEMALE
     Dosage: BID X 7 DAY ON, 7 DAY OFF
     Route: 048
     Dates: start: 20170302, end: 20170327
  2. CAPECITABINE 500MG ACCORD [Suspect]
     Active Substance: CAPECITABINE
     Indication: METASTASES TO PLEURA
     Dosage: BID X 7 DAY ON, 7 DAY OFF
     Route: 048
     Dates: start: 20170302, end: 20170327

REACTIONS (4)
  - Abdominal distension [None]
  - Abdominal pain [None]
  - Diarrhoea [None]
  - Vomiting [None]
